FAERS Safety Report 9140867 (Version 1)
Quarter: 2013Q1

REPORT INFORMATION
  Report Type: Spontaneous
  Country: US (occurrence: US)
  Receive Date: 20130305
  Receipt Date: 20130305
  Transmission Date: 20140127
  Serious: Yes (Hospitalization)
  Sender: FDA-Public Use
  Company Number: US-ACTELION-A-US2012-64530

PATIENT
  Age: 69 Year
  Sex: Female

DRUGS (12)
  1. VELETRI [Suspect]
     Indication: PULMONARY ARTERIAL HYPERTENSION
     Dosage: 65 NG/KG, PER MIN
     Route: 042
     Dates: start: 20110425
  2. TRACLEER [Suspect]
     Indication: PULMONARY ARTERIAL HYPERTENSION
     Dosage: 125 MG, BID
     Route: 048
  3. COUMADIN [Concomitant]
  4. MORPHINE SULFATE [Concomitant]
  5. DIGOXIN [Concomitant]
  6. FUROSEMIDE [Concomitant]
  7. SERTRALINE [Concomitant]
     Dosage: 200 MG, UNK
     Route: 048
  8. FERROUS SULFATE [Concomitant]
     Dosage: 325 MG, OD
     Route: 048
  9. POLYVITAMIN [Concomitant]
  10. LORAZEPAM [Concomitant]
     Dosage: 2 MG, TID
  11. PROTONIX [Concomitant]
     Dosage: 40 MG, OD
  12. OXYCODONE [Concomitant]
     Dosage: 5 MG, Q6HRS

REACTIONS (18)
  - Medical device complication [Recovered/Resolved]
  - Osteoarthritis [Recovered/Resolved]
  - Device malfunction [Unknown]
  - Speech disorder [Unknown]
  - Hyperhidrosis [Unknown]
  - Arthralgia [Recovered/Resolved]
  - Abasia [Recovered/Resolved]
  - Joint swelling [Recovered/Resolved]
  - Tenderness [Recovered/Resolved]
  - Joint effusion [Recovered/Resolved]
  - Discomfort [Recovered/Resolved]
  - Dizziness [Recovered/Resolved]
  - Flushing [Recovered/Resolved]
  - Anxiety [Recovered/Resolved]
  - Chest discomfort [Recovered/Resolved]
  - Nausea [Recovered/Resolved]
  - Asthenia [Recovered/Resolved]
  - Dyspnoea [Recovered/Resolved]
